FAERS Safety Report 23936971 (Version 1)
Quarter: 2024Q2

REPORT INFORMATION
  Report Type: Spontaneous
  Country: FR (occurrence: None)
  Receive Date: 20240604
  Receipt Date: 20240604
  Transmission Date: 20240715
  Serious: Yes (Hospitalization, Other)
  Sender: FDA-Public Use
  Company Number: FR-Orion Corporation ORION PHARMA-TREX2024-0130

PATIENT
  Age: 15 Year
  Sex: Female
  Weight: 120 kg

DRUGS (5)
  1. METHOTREXATE SODIUM [Suspect]
     Active Substance: METHOTREXATE SODIUM
     Indication: B-cell type acute leukaemia
     Dates: start: 20231206, end: 20231230
  2. METHOTREXATE SODIUM [Suspect]
     Active Substance: METHOTREXATE SODIUM
     Dates: start: 20240117
  3. PURINETHOL [Suspect]
     Active Substance: MERCAPTOPURINE
     Indication: B-cell type acute leukaemia
     Dates: start: 20231206, end: 20231226
  4. PURINETHOL [Suspect]
     Active Substance: MERCAPTOPURINE
     Dates: start: 20231227, end: 20231230
  5. PURINETHOL [Suspect]
     Active Substance: MERCAPTOPURINE
     Dates: start: 20240122

REACTIONS (2)
  - Pancreatitis acute [Recovered/Resolved]
  - Nephrolithiasis [Unknown]

NARRATIVE: CASE EVENT DATE: 20231230
